FAERS Safety Report 15510445 (Version 1)
Quarter: 2018Q4

REPORT INFORMATION
  Report Type: Spontaneous
  Country: US (occurrence: US)
  Receive Date: 20181010
  Receipt Date: 20181010
  Transmission Date: 20190205
  Serious: Yes (Hospitalization, Disabling)
  Sender: FDA-Public Use
  Company Number: None

PATIENT
  Age: 30 Year
  Sex: Female
  Weight: 101.61 kg

DRUGS (7)
  1. KLONOPIN [Concomitant]
     Active Substance: CLONAZEPAM
  2. LEXAPRO [Concomitant]
     Active Substance: ESCITALOPRAM OXALATE
  3. DIAMOX SEQUELS [Concomitant]
     Active Substance: ACETAZOLAMIDE
  4. PHENERGAN [Concomitant]
     Active Substance: PROMETHAZINE HYDROCHLORIDE
  5. NEXPLANON [Suspect]
     Active Substance: ETONOGESTREL
     Dates: start: 20130103, end: 20160301
  6. TOPAMAX [Concomitant]
     Active Substance: TOPIRAMATE
  7. VITAMINS [Concomitant]
     Active Substance: VITAMINS

REACTIONS (11)
  - Ovarian cyst [None]
  - Gallbladder necrosis [None]
  - Migraine [None]
  - Irritable bowel syndrome [None]
  - Nausea [None]
  - Gallbladder disorder [None]
  - Mass [None]
  - Weight increased [None]
  - Hepatic steatosis [None]
  - Malaise [None]
  - Emotional disorder [None]

NARRATIVE: CASE EVENT DATE: 20130201
